FAERS Safety Report 19746083 (Version 2)
Quarter: 2021Q4

REPORT INFORMATION
  Report Type: Other
  Country: CA (occurrence: None)
  Receive Date: 20210825
  Receipt Date: 20211105
  Transmission Date: 20220303
  Serious: Yes (Other)
  Sender: FDA-Public Use
  Company Number: CA-ROCHE-2894550

PATIENT
  Age: 61 Year
  Sex: Female

DRUGS (18)
  1. ACTEMRA [Suspect]
     Active Substance: TOCILIZUMAB
     Indication: Rheumatoid arthritis
     Route: 042
     Dates: start: 20130213, end: 20181023
  2. ACTEMRA [Suspect]
     Active Substance: TOCILIZUMAB
     Route: 042
     Dates: start: 20181120, end: 20200120
  3. ACTEMRA [Suspect]
     Active Substance: TOCILIZUMAB
     Route: 042
     Dates: start: 20200217, end: 202110
  4. CALCIUM [Concomitant]
     Active Substance: CALCIUM
  5. CELEBREX [Concomitant]
     Active Substance: CELECOXIB
  6. CYMBALTA [Concomitant]
     Active Substance: DULOXETINE HYDROCHLORIDE
  7. FEVERFEW\TANACETUM PARTHENIUM [Concomitant]
     Active Substance: FEVERFEW\TANACETUM PARTHENIUM
     Indication: Migraine
  8. FEVERFEW\TANACETUM PARTHENIUM [Concomitant]
     Active Substance: FEVERFEW\TANACETUM PARTHENIUM
     Indication: Headache
  9. FISH OIL [Concomitant]
     Active Substance: FISH OIL
  10. FOLIC ACID [Concomitant]
     Active Substance: FOLIC ACID
  11. MAGNESIUM [Concomitant]
     Active Substance: MAGNESIUM
  12. METHOTREXATE [Concomitant]
     Active Substance: METHOTREXATE
  13. OMEGA 3 [Concomitant]
     Active Substance: CAPSAICIN
  14. PALIFERMIN [Concomitant]
     Active Substance: PALIFERMIN
  15. RABEPRAZOLE [Concomitant]
     Active Substance: RABEPRAZOLE
  16. HERBALS\TURMERIC [Concomitant]
     Active Substance: HERBALS\TURMERIC
  17. VITAMIN C [Concomitant]
     Active Substance: ASCORBIC ACID
  18. ZOPICLONE [Concomitant]
     Active Substance: ZOPICLONE

REACTIONS (1)
  - Postoperative wound infection [Unknown]

NARRATIVE: CASE EVENT DATE: 20210801
